FAERS Safety Report 5448605-3 (Version None)
Quarter: 2007Q3

REPORT INFORMATION
  Report Type: 
  Country: None (occurrence: None)
  Receive Date: 20070905
  Receipt Date: 20070821
  Transmission Date: 20080115
  Serious: Yes (Hospitalization)
  Sender: FDA-Public Use
  Company Number: 2007S1008113

PATIENT
  Age: 9 Year
  Sex: Male

DRUGS (2)
  1. INDOMETHACIN [Suspect]
     Indication: ARTHRALGIA
     Dosage: ORAL
     Route: 048
  2. CLONIDINE [Concomitant]

REACTIONS (6)
  - GINGIVAL BLEEDING [None]
  - GINGIVAL DISCOLOURATION [None]
  - GINGIVAL HYPERTROPHY [None]
  - PALATAL DISORDER [None]
  - PETECHIAE [None]
  - PURPURA [None]
